FAERS Safety Report 4582089-2 (Version None)
Quarter: 2005Q1

REPORT INFORMATION
  Report Type: 
  Country: None (occurrence: None)
  Receive Date: 20050119
  Receipt Date: 20040628
  Transmission Date: 20050727
  Serious: Yes (Other)
  Sender: FDA-Public Use
  Company Number: A03200402084

PATIENT
  Age: 58 Year
  Sex: Male

DRUGS (4)
  1. PLAVIX [Suspect]
     Dosage: ORAL
     Route: 048
  2. TENECTEPLASE ^BI PHARMA^ [Suspect]
  3. HEPARIN [Suspect]
  4. ASPIRIN [Suspect]

REACTIONS (1)
  - HAEMATOMA [None]
